FAERS Safety Report 6622051-9 (Version None)
Quarter: 2010Q1

REPORT INFORMATION
  Report Type: 
  Country: None (occurrence: None)
  Receive Date: 20100304
  Receipt Date: 20100224
  Transmission Date: 20100710
  Serious: Yes (Hospitalization)
  Sender: FDA-Public Use
  Company Number: 2010SP012015

PATIENT
  Sex: Female

DRUGS (3)
  1. NORSET            (MIRTAZAPINE ) [Suspect]
     Indication: DEPRESSION
     Dosage: 15 MG; QD; PO
     Route: 048
  2. ANAFRANIL [Suspect]
     Indication: DEPRESSION
     Dosage: PO
     Route: 048
  3. STILNOX [Concomitant]

REACTIONS (4)
  - CHOLELITHIASIS [None]
  - DRUG TOXICITY [None]
  - HEPATITIS [None]
  - PANCREATITIS [None]
